FAERS Safety Report 18244582 (Version 3)
Quarter: 2020Q4

REPORT INFORMATION
  Report Type: Spontaneous
  Country: JP (occurrence: JP)
  Receive Date: 20200908
  Receipt Date: 20201009
  Transmission Date: 20210113
  Serious: Yes (Life-Threatening, Hospitalization, Other)
  Sender: FDA-Public Use
  Company Number: JP-JNJFOC-20200846088

PATIENT
  Age: 55 Year
  Sex: Female
  Weight: 60 kg

DRUGS (5)
  1. ATENOLOL. [Concomitant]
     Active Substance: ATENOLOL
     Indication: HYPERTENSION
     Route: 048
  2. VALPROATE SODIUM. [Concomitant]
     Active Substance: VALPROATE SODIUM
     Indication: DEPRESSION
     Route: 048
  3. TRABECTEDIN [Suspect]
     Active Substance: TRABECTEDIN
     Indication: DEDIFFERENTIATED LIPOSARCOMA
     Dosage: CYCLE 1-2, 24 HOUR INFUSION EVERY 3 WEEKS
     Route: 041
     Dates: start: 20200612, end: 20200702
  4. DIAPAX [Suspect]
     Active Substance: DIAZEPAM
     Indication: DEPRESSION
     Route: 048
     Dates: end: 20200804
  5. TELMISARTAN. [Concomitant]
     Active Substance: TELMISARTAN
     Indication: HYPERTENSION
     Route: 048

REACTIONS (8)
  - Platelet count decreased [Recovered/Resolved]
  - Rhabdomyolysis [Recovered/Resolved]
  - Liver disorder [Recovered/Resolved]
  - Pleural effusion [Unknown]
  - Anaemia [Recovered/Resolved]
  - Renal impairment [Recovered/Resolved]
  - Device related infection [Unknown]
  - Respiratory failure [Recovered/Resolved]

NARRATIVE: CASE EVENT DATE: 202007
